FAERS Safety Report 15434188 (Version 1)
Quarter: 2018Q3

REPORT INFORMATION
  Report Type: Report from Study
  Country: TW (occurrence: TW)
  Receive Date: 20180927
  Receipt Date: 20180927
  Transmission Date: 20181010
  Serious: Yes (Death, Hospitalization, Other)
  Sender: FDA-Public Use
  Company Number: PHHY2018TW098048

PATIENT
  Age: 63 Year
  Sex: Male
  Weight: 67 kg

DRUGS (1)
  1. VOTRIENT [Suspect]
     Active Substance: PAZOPANIB HYDROCHLORIDE
     Indication: RENAL CELL CARCINOMA
     Dosage: 600 OT, UNK
     Route: 065
     Dates: start: 20180614, end: 20180829

REACTIONS (7)
  - Death [Fatal]
  - Dyspnoea [Unknown]
  - Renal impairment [Unknown]
  - Chronic obstructive pulmonary disease [Recovering/Resolving]
  - Pleural effusion [Unknown]
  - Pneumonia [Unknown]
  - Benign prostatic hyperplasia [Recovered/Resolved]

NARRATIVE: CASE EVENT DATE: 20180619
